FAERS Safety Report 13070968 (Version 3)
Quarter: 2017Q1

REPORT INFORMATION
  Report Type: Spontaneous
  Country: JP (occurrence: JP)
  Receive Date: 20161229
  Receipt Date: 20170217
  Transmission Date: 20170428
  Serious: Yes (Other)
  Sender: FDA-Public Use
  Company Number: PHJP2016JP038116

PATIENT
  Age: 26 Year
  Sex: Male
  Weight: 65 kg

DRUGS (1)
  1. GILENYA [Suspect]
     Active Substance: FINGOLIMOD HYDROCHLORIDE
     Indication: MULTIPLE SCLEROSIS
     Dosage: 0.5 MG, UNK
     Route: 048
     Dates: start: 20161221, end: 20161225

REACTIONS (4)
  - Multiple sclerosis [Unknown]
  - Optic neuritis [Recovered/Resolved]
  - Visual field defect [Unknown]
  - Blindness [Unknown]

NARRATIVE: CASE EVENT DATE: 20161225
